FAERS Safety Report 7605699-4 (Version None)
Quarter: 2011Q3

REPORT INFORMATION
  Report Type: 
  Country: None (occurrence: None)
  Receive Date: 20110705
  Receipt Date: 20110620
  Transmission Date: 20111222
  Serious: Yes (Hospitalization)
  Sender: FDA-Public Use
  Company Number: AUR-APL-2011-03495

PATIENT
  Age: 52 Year
  Sex: Male

DRUGS (1)
  1. SERTRALINE HYDROCHLORIDE [Suspect]
     Indication: DEPRESSION
     Dosage: (200 MG) ; (400 MG)

REACTIONS (6)
  - DIFFUSE ALVEOLAR DAMAGE [None]
  - RESPIRATORY FAILURE [None]
  - RESTRICTIVE PULMONARY DISEASE [None]
  - BLOOD PRESSURE DIASTOLIC DECREASED [None]
  - COUGH [None]
  - CYANOSIS CENTRAL [None]
